FAERS Safety Report 4850096-8 (Version None)
Quarter: 2005Q4

REPORT INFORMATION
  Report Type: 
  Country: None (occurrence: None)
  Receive Date: 20051107
  Receipt Date: 20050628
  Transmission Date: 20060501
  Serious: Yes (Other)
  Sender: FDA-Public Use
  Company Number: PHEH2005US07256

PATIENT
  Age: 57 Year
  Sex: Female

DRUGS (6)
  1. ESTRADERM [Suspect]
     Indication: MENOPAUSE
     Dates: start: 19920101
  2. VIVELLE-DOT [Suspect]
     Indication: MENOPAUSE
     Dates: start: 19920101
  3. ESTALIS COMBIPATCH (ESTRADIOL, NORETHISTERONE ACETATE) [Suspect]
     Indication: MENOPAUSE
     Dates: start: 19920101
  4. PREMARIN [Suspect]
     Indication: MENOPAUSE
     Dates: start: 19920101
  5. PROVERA [Suspect]
     Indication: MENOPAUSE
     Dates: start: 19920101
  6. PREMPRO [Suspect]
     Indication: MENOPAUSE
     Dates: start: 19920101

REACTIONS (3)
  - BREAST CANCER [None]
  - MASTECTOMY [None]
  - ULTRASOUND BREAST ABNORMAL [None]
